FAERS Safety Report 6517559-0 (Version None)
Quarter: 2009Q4

REPORT INFORMATION
  Report Type: 
  Country: None (occurrence: None)
  Receive Date: 20091224
  Receipt Date: 20091215
  Transmission Date: 20100525
  Serious: Yes (Death, Hospitalization)
  Sender: FDA-Public Use
  Company Number: BR-ROCHE-675210

PATIENT
  Sex: Male

DRUGS (5)
  1. PEG-INTERFERON ALFA 2A (RO 25-8310) [Suspect]
     Indication: HEPATITIS C
     Route: 065
     Dates: start: 20080901, end: 20090101
  2. RIBAVIRIN [Suspect]
     Indication: HEPATITIS C
     Route: 065
     Dates: start: 20080901, end: 20090101
  3. PROPRANOLOL [Concomitant]
     Dosage: DRUG REPORTED: PROPANOLOL
     Dates: end: 20090101
  4. ALDACTONE [Concomitant]
     Dates: end: 20090101
  5. FOLIC ACID [Concomitant]
     Dates: end: 20090101

REACTIONS (4)
  - HEPATIC CIRRHOSIS [None]
  - HEPATIC ENCEPHALOPATHY [None]
  - HEPATIC NEOPLASM MALIGNANT [None]
  - RENAL FAILURE ACUTE [None]
